FAERS Safety Report 8184242-8 (Version None)
Quarter: 2012Q1

REPORT INFORMATION
  Report Type: 
  Country: None (occurrence: None)
  Receive Date: 20120305
  Receipt Date: 20120227
  Transmission Date: 20120608
  Serious: Yes (Congenital Anomaly)
  Sender: FDA-Public Use
  Company Number: US-TEVA-325016USA

PATIENT
  Age: 13 Day

DRUGS (2)
  1. LAMOTRIGINE [Suspect]
     Route: 064
  2. LEVETIRACETAM [Suspect]
     Route: 064

REACTIONS (1)
  - VENTRICULAR SEPTAL DEFECT [None]
